FAERS Safety Report 10283445 (Version 2)
Quarter: 2014Q3

REPORT INFORMATION
  Report Type: Spontaneous
  Country: US (occurrence: None)
  Receive Date: 20140702
  Receipt Date: 20140716
  Transmission Date: 20150326
  Serious: Yes (Other)
  Sender: FDA-Public Use
  Company Number: 20140375

PATIENT
  Age: 37 Year
  Sex: Female

DRUGS (8)
  1. PROTAMINE SULFATE. [Suspect]
     Active Substance: PROTAMINE SULFATE
     Indication: HYPOTENSION
     Dosage: 200 MG OVER 12 MIN
  2. METHYLTHIONINIUM CHLORIDE [Concomitant]
     Active Substance: METHYLENE BLUE
  3. HYDROCORTISONE. [Concomitant]
     Active Substance: HYDROCORTISONE
  4. VASOPRESSIN INJECTION, USP (0510-25) (VASOPRESSIN) [Concomitant]
  5. DESMOPRESSIN [Concomitant]
     Active Substance: DESMOPRESSIN
  6. LEVOTHYROXINE SODIUM. [Concomitant]
     Active Substance: LEVOTHYROXINE SODIUM
  7. DIPHENHYDRAMINE [Concomitant]
     Active Substance: DIPHENHYDRAMINE
  8. EPINEPHRINE INJECTION, USP (1071-25) 1 MG/ML [Suspect]
     Active Substance: EPINEPHRINE
     Indication: PRODUCT USED FOR UNKNOWN INDICATION
     Dosage: 12.8 MG TOTAL, INTRAVENOUS
     Route: 042

REACTIONS (2)
  - Kounis syndrome [None]
  - Stress cardiomyopathy [None]
